FAERS Safety Report 25854498 (Version 1)
Quarter: 2025Q3

REPORT INFORMATION
  Report Type: Spontaneous
  Country: EU (occurrence: EU)
  Receive Date: 20250927
  Receipt Date: 20250927
  Transmission Date: 20251021
  Serious: Yes (Other)
  Sender: MICRO LABS
  Company Number: EU-862174955-ML2025-04869

PATIENT
  Age: 48 Year
  Sex: Male

DRUGS (2)
  1. RANOLAZINE [Suspect]
     Active Substance: RANOLAZINE
     Indication: Microvascular coronary artery disease
     Dosage: RANOLAZINE 375 MG TWICE A DAY
  2. RANOLAZINE [Suspect]
     Active Substance: RANOLAZINE

REACTIONS (1)
  - Brugada syndrome [Recovered/Resolved]
